FAERS Safety Report 8530990-7 (Version None)
Quarter: 2012Q3

REPORT INFORMATION
  Report Type: 
  Country: None (occurrence: None)
  Receive Date: 20120710
  Receipt Date: 20120629
  Transmission Date: 20120928
  Serious: Yes (Other)
  Sender: FDA-Public Use
  Company Number: FK201201811

PATIENT
  Age: 75 Year
  Sex: Female

DRUGS (9)
  1. LISINOPRIL [Concomitant]
  2. VANCOMYCIN [Suspect]
     Indication: PRODUCT USED FOR UNKNOWN INDICATION
     Dosage: UNKNOWN
  3. DOFETILIDE (DOFETILIDE) [Suspect]
     Indication: ATRIAL FIBRILLATION
     Dosage: 0.5 MG, TWICE A DAY
     Dates: start: 20081101
  4. WARFARIN SODIUM [Suspect]
     Indication: ATRIAL FIBRILLATION
     Dosage: 7.5 MG, DAILY, UNKNOWN, 5 MG, DAILY, UNKNOWN
     Dates: end: 20110904
  5. WARFARIN SODIUM [Suspect]
     Indication: ATRIAL FIBRILLATION
     Dosage: 7.5 MG, DAILY, UNKNOWN, 5 MG, DAILY, UNKNOWN
     Dates: start: 20080101
  6. THYROID MEDICINE (THYROID THERAPY) [Concomitant]
  7. DILTIAZEM [Concomitant]
  8. BETAPACE [Concomitant]
  9. METOPROLOL TARTRATE [Concomitant]

REACTIONS (2)
  - HAEMARTHROSIS [None]
  - HYPOACUSIS [None]
